FAERS Safety Report 14712695 (Version 1)
Quarter: 2018Q2

REPORT INFORMATION
  Report Type: Spontaneous
  Country: US (occurrence: US)
  Receive Date: 20180404
  Receipt Date: 20180404
  Transmission Date: 20180711
  Serious: Yes (Other)
  Sender: FDA-Public Use
  Company Number: US-ROCHE-2097301

PATIENT
  Age: 64 Year
  Sex: Female
  Weight: 108.96 kg

DRUGS (4)
  1. SOLU-MEDROL [Concomitant]
     Active Substance: METHYLPREDNISOLONE SODIUM SUCCINATE
     Indication: PREMEDICATION
     Dosage: BEFORE OCREVUS ;ONGOING: UNKNOWN?RECEIVED 2 ADDITIONAL DOSES ON SAME DAY
     Route: 065
     Dates: start: 20180213
  2. OCREVUS [Suspect]
     Active Substance: OCRELIZUMAB
     Route: 042
     Dates: start: 20180315
  3. SOLU-MEDROL [Concomitant]
     Active Substance: METHYLPREDNISOLONE SODIUM SUCCINATE
     Indication: HYPERSENSITIVITY
  4. OCREVUS [Suspect]
     Active Substance: OCRELIZUMAB
     Indication: MULTIPLE SCLEROSIS
     Dosage: ONGOING: UNKNOWN
     Route: 042
     Dates: start: 20180213

REACTIONS (21)
  - Malaise [Unknown]
  - Pain [Unknown]
  - Abdominal discomfort [Unknown]
  - Feeling cold [Unknown]
  - Hypersensitivity [Recovered/Resolved]
  - Influenza like illness [Unknown]
  - Weight increased [Unknown]
  - Therapy non-responder [Unknown]
  - Ill-defined disorder [Unknown]
  - Laceration [Unknown]
  - Nausea [Unknown]
  - Dizziness [Unknown]
  - Headache [Recovered/Resolved]
  - Fatigue [Not Recovered/Not Resolved]
  - Feeling abnormal [Unknown]
  - Throat tightness [Recovered/Resolved]
  - Eye disorder [Unknown]
  - Peripheral coldness [Not Recovered/Not Resolved]
  - Fall [Unknown]
  - Skin abrasion [Unknown]
  - Insomnia [Unknown]

NARRATIVE: CASE EVENT DATE: 20180213
